FAERS Safety Report 13160116 (Version 2)
Quarter: 2017Q1

REPORT INFORMATION
  Report Type: Spontaneous
  Country: DE (occurrence: DE)
  Receive Date: 20170127
  Receipt Date: 20170208
  Transmission Date: 20170428
  Serious: Yes (Other)
  Sender: FDA-Public Use
  Company Number: GXKR2017DE000842

PATIENT
  Age: 71 Year
  Sex: Female
  Weight: 90 kg

DRUGS (3)
  1. OMEP [Suspect]
     Active Substance: OMEPRAZOLE
     Indication: DIAPHRAGMATIC HERNIA
     Dosage: 40 MG, BID
     Route: 048
     Dates: start: 20170106, end: 20170118
  2. OMEP [Suspect]
     Active Substance: OMEPRAZOLE
     Indication: NAUSEA
  3. OMEP [Suspect]
     Active Substance: OMEPRAZOLE
     Indication: DYSPEPSIA

REACTIONS (4)
  - Nausea [Not Recovered/Not Resolved]
  - Gastric haemorrhage [Unknown]
  - Oesophageal irritation [Unknown]
  - Abdominal pain upper [Not Recovered/Not Resolved]
